FAERS Safety Report 9423271 (Version 1)
Quarter: 2013Q3

REPORT INFORMATION
  Report Type: Other
  Country: DE (occurrence: DE)
  Receive Date: 20130726
  Receipt Date: 20130726
  Transmission Date: 20140515
  Serious: Yes (Hospitalization)
  Sender: FDA-Public Use
  Company Number: DE-BRISTOL-MYERS SQUIBB COMPANY-19112572

PATIENT
  Age: 56 Year
  Sex: Female

DRUGS (3)
  1. CARBOPLATIN [Suspect]
     Indication: OVARIAN CANCER
     Dosage: 1DF=AREA UNDER THE CURVE OF 4
     Dates: start: 2011
  2. BEVACIZUMAB [Suspect]
     Indication: OVARIAN CANCER
     Dates: start: 2011
  3. GEMCITABINE [Suspect]
     Indication: OVARIAN CANCER
     Dates: start: 2011

REACTIONS (1)
  - Gastropleural fistula [Unknown]
